FAERS Safety Report 4915167-6 (Version None)
Quarter: 2006Q1

REPORT INFORMATION
  Report Type: 
  Country: None (occurrence: None)
  Receive Date: 20060215
  Receipt Date: 20060215
  Transmission Date: 20060701
  Serious: Yes (Hospitalization, Other)
  Sender: FDA-Public Use
  Company Number: None

PATIENT
  Sex: Male
  Weight: 65 kg

DRUGS (10)
  1. CYCLOPHOSPHAMIDE [Suspect]
     Indication: DIFFUSE LARGE B-CELL LYMPHOMA
     Dosage: 1427 MG
     Dates: end: 20060130
  2. DOXORUBICIN HCL [Suspect]
     Dosage: 76 MG
     Dates: end: 20060129
  3. ETOPOSIDE [Suspect]
     Dosage: 380 MG
     Dates: end: 20060129
  4. G-CSF (FILGRASTIM, AMGEN) [Suspect]
     Dosage: 3000 MCG
     Dates: end: 20060202
  5. PREDNISONE [Suspect]
     Dosage: 570 MG
     Dates: end: 20060129
  6. VINCRISTINE SULFATE [Suspect]
     Dosage: 3.04 MG
     Dates: end: 20060129
  7. BACTRIM DS [Concomitant]
  8. DILAUDID [Concomitant]
  9. KALETRA [Concomitant]
  10. TRUVADA [Concomitant]

REACTIONS (2)
  - DEHYDRATION [None]
  - VOMITING [None]
